FAERS Safety Report 13447449 (Version 1)
Quarter: 2017Q2

REPORT INFORMATION
  Report Type: Spontaneous
  Country: US (occurrence: US)
  Receive Date: 20170414
  Receipt Date: 20170414
  Transmission Date: 20170830
  Serious: No
  Sender: FDA-Public Use
  Company Number: None

PATIENT
  Sex: Female

DRUGS (1)
  1. GLATOPA [Suspect]
     Active Substance: GLATIRAMER ACETATE
     Indication: MULTIPLE SCLEROSIS
     Route: 058
     Dates: start: 20161004, end: 20170401

REACTIONS (6)
  - Headache [None]
  - Dry eye [None]
  - Rectal haemorrhage [None]
  - Hypertension [None]
  - Influenza like illness [None]
  - Vaginal haemorrhage [None]
